FAERS Safety Report 12818194 (Version 2)
Quarter: 2016Q4

REPORT INFORMATION
  Report Type: Spontaneous
  Country: US (occurrence: US)
  Receive Date: 20161006
  Receipt Date: 20161012
  Transmission Date: 20170207
  Serious: Yes (Other)
  Sender: FDA-Public Use
  Company Number: US-PFIZER INC-2016463245

PATIENT
  Sex: Female

DRUGS (1)
  1. ADVIL [Suspect]
     Active Substance: IBUPROFEN
     Dosage: UNK

REACTIONS (6)
  - Weight decreased [Unknown]
  - Oral discomfort [Unknown]
  - Throat irritation [Unknown]
  - Dysphagia [Unknown]
  - Feeding disorder [Unknown]
  - Intentional product misuse [Unknown]
